FAERS Safety Report 5171135-3 (Version None)
Quarter: 2006Q4

REPORT INFORMATION
  Report Type: 
  Country: None (occurrence: None)
  Receive Date: 20061213
  Receipt Date: 20061026
  Transmission Date: 20070319
  Serious: Yes (Other)
  Sender: FDA-Public Use
  Company Number: PHBS2006JP16848

PATIENT
  Age: 64 Year
  Sex: Female
  Weight: 38 kg

DRUGS (5)
  1. ZOMETA [Suspect]
     Indication: METASTASES TO BONE
     Dosage: 4 MG, UNK
     Route: 042
     Dates: start: 20060811, end: 20060908
  2. AREDIA [Suspect]
     Indication: METASTASES TO BONE
     Dosage: 90 MG, UNK
     Route: 042
     Dates: start: 20041216, end: 20060714
  3. EPIRUBICIN [Concomitant]
     Dosage: 6 COURSES
     Route: 065
  4. CYCLOPHOSPHAMIDE [Concomitant]
     Dosage: 6 COURSES
     Route: 065
  5. DOCETAXEL [Concomitant]
     Dosage: 5 COURSES
     Route: 065

REACTIONS (9)
  - ANOREXIA [None]
  - DYSPNOEA [None]
  - GINGIVAL PAIN [None]
  - METASTASES TO LIVER [None]
  - OSTEOMYELITIS [None]
  - OSTEONECROSIS [None]
  - PLEURAL EFFUSION [None]
  - PURULENT DISCHARGE [None]
  - TOOTH EXTRACTION [None]
